FAERS Safety Report 19153532 (Version 5)
Quarter: 2021Q2

REPORT INFORMATION
  Report Type: Report from Study
  Country: BR (occurrence: BR)
  Receive Date: 20210419
  Receipt Date: 20210624
  Transmission Date: 20210717
  Serious: Yes (Other)
  Sender: FDA-Public Use
  Company Number: NVSC2021BR042593

PATIENT
  Age: 88 Year
  Sex: Female

DRUGS (4)
  1. KISQALI [Suspect]
     Active Substance: RIBOCICLIB
     Indication: METASTASES TO LIVER
     Dosage: UNK, 7 DAY BREAK)
     Route: 065
     Dates: start: 20210114
  2. LABIRIN [Concomitant]
     Active Substance: BETAHISTINE
     Indication: PRODUCT USED FOR UNKNOWN INDICATION
     Dosage: UNK
     Route: 065
  3. BEPANTOL [Concomitant]
     Indication: PRODUCT USED FOR UNKNOWN INDICATION
     Dosage: UNK
     Route: 065
  4. KISQALI [Suspect]
     Active Substance: RIBOCICLIB
     Indication: BREAST CANCER
     Dosage: 3 DF (CYCLE OF 21 DAYS, STOP FOR 7 DAYS)
     Route: 065
     Dates: start: 20210225

REACTIONS (18)
  - Secretion discharge [Recovered/Resolved]
  - Wound [Unknown]
  - Drug ineffective [Unknown]
  - Metastasis [Unknown]
  - Haemorrhage [Recovered/Resolved]
  - Tumour ulceration [Recovered/Resolved]
  - Erythema [Unknown]
  - Infection [Recovered/Resolved]
  - Drug intolerance [Unknown]
  - White blood cell count decreased [Unknown]
  - Breast cancer [Unknown]
  - Hypersensitivity [Unknown]
  - Peripheral swelling [Unknown]
  - Somnolence [Not Recovered/Not Resolved]
  - Asthenia [Recovering/Resolving]
  - Gait disturbance [Recovering/Resolving]
  - Soft tissue infection [Unknown]
  - Malignant neoplasm progression [Unknown]

NARRATIVE: CASE EVENT DATE: 20210614
